FAERS Safety Report 7182717-1 (Version None)
Quarter: 2010Q4

REPORT INFORMATION
  Report Type: 
  Country: None (occurrence: None)
  Receive Date: 20101221
  Receipt Date: 20101217
  Transmission Date: 20110411
  Serious: Yes (Death)
  Sender: FDA-Public Use
  Company Number: GB-AMGEN-GBRSP2010009660

PATIENT

DRUGS (5)
  1. NEULASTA [Suspect]
     Indication: NEUTROPENIA
  2. ADRIAMYCIN PFS [Concomitant]
     Indication: HODGKIN'S DISEASE
  3. BLEOMYCIN SULFATE [Concomitant]
     Indication: HODGKIN'S DISEASE
  4. VINBLASTINE [Concomitant]
     Indication: HODGKIN'S DISEASE
  5. DACARBAZINE [Concomitant]
     Indication: HODGKIN'S DISEASE

REACTIONS (1)
  - PULMONARY TOXICITY [None]
